FAERS Safety Report 26077950 (Version 2)
Quarter: 2025Q4

REPORT INFORMATION
  Report Type: Spontaneous
  Country: US (occurrence: US)
  Receive Date: 20251122
  Receipt Date: 20251216
  Transmission Date: 20260118
  Serious: Yes (Other)
  Sender: MDD OPERATIONS
  Company Number: US-MDD US Operations-MDD202510-004309

PATIENT
  Age: 52 Year
  Sex: Female

DRUGS (6)
  1. ONAPGO [Suspect]
     Active Substance: APOMORPHINE HYDROCHLORIDE
     Indication: Parkinson^s disease
     Dosage: UP TO 16 HOURS A DAY
     Dates: start: 20251015
  2. ONAPGO [Suspect]
     Active Substance: APOMORPHINE HYDROCHLORIDE
     Indication: Dyskinesia
     Dosage: ONE AND A HALF MILLIGRAMS PER HOUR FOR UP TO 16 HOURS A DAY
     Dates: start: 20251016
  3. ONAPGO [Suspect]
     Active Substance: APOMORPHINE HYDROCHLORIDE
     Indication: On and off phenomenon
     Dosage: STRENGTH: 98MG/20ML (4.9MG/ML); INFUSE CONTENTS OF 1 CARTRIDGE FOR 16 HOURS OR LESS EACH DAY. CONTIN
     Dates: start: 202510
  4. ONAPGO [Suspect]
     Active Substance: APOMORPHINE HYDROCHLORIDE
     Dosage: 2.5MG PER HOUR, FOR UP TO 16 HOURS
     Dates: start: 20251124
  5. AMLODIPINE [Concomitant]
     Active Substance: AMLODIPINE BESYLATE
     Dosage: 22.5MG DAILY
  6. CARBIDOPA\LEVODOPA [Concomitant]
     Active Substance: CARBIDOPA\LEVODOPA
     Dosage: EVERY 2 HOURS DURING THE DAY

REACTIONS (7)
  - Dystonia [Recovering/Resolving]
  - Dyskinesia [Recovering/Resolving]
  - Dizziness [Not Recovered/Not Resolved]
  - Fatigue [Unknown]
  - Somnolence [Unknown]
  - Infusion site haemorrhage [Recovered/Resolved]
  - Device occlusion [Unknown]

NARRATIVE: CASE EVENT DATE: 20251016
